FAERS Safety Report 7036220-X (Version None)
Quarter: 2010Q4

REPORT INFORMATION
  Report Type: 
  Country: None (occurrence: None)
  Receive Date: 20101008
  Receipt Date: 20100927
  Transmission Date: 20110411
  Serious: Yes (Hospitalization)
  Sender: FDA-Public Use
  Company Number: DE-MYLANLABS-2009S1003549

PATIENT
  Age: 87 Year
  Sex: Female

DRUGS (6)
  1. BISOPROLOL [Suspect]
     Indication: HYPERTENSION
     Route: 048
     Dates: start: 20070101, end: 20081025
  2. ACETYLSALICYLIC ACID SRT [Concomitant]
     Indication: CEREBRAL ARTERIOSCLEROSIS
     Route: 048
     Dates: start: 20000101
  3. BENALAPRIL [Concomitant]
     Indication: HYPERTENSION
     Route: 048
     Dates: start: 20000101
  4. FURORESE [Concomitant]
     Indication: HYPERTENSION
     Route: 048
     Dates: start: 20000101
  5. L-THYROXINE /00068001/ [Concomitant]
     Indication: HYPOTHYROIDISM
     Route: 048
  6. MUNOBAL [Concomitant]
     Indication: HYPERTENSION
     Route: 048
     Dates: start: 20070101

REACTIONS (1)
  - BRADYARRHYTHMIA [None]
